FAERS Safety Report 18468090 (Version 2)
Quarter: 2022Q3

REPORT INFORMATION
  Report Type: Spontaneous
  Country: CA (occurrence: CA)
  Receive Date: 20201105
  Receipt Date: 20220711
  Transmission Date: 20221026
  Serious: Yes (Other)
  Sender: FDA-Public Use
  Company Number: CA-GLAXOSMITHKLINE-CA2020GSK219240

PATIENT

DRUGS (2)
  1. AVANDIA [Suspect]
     Active Substance: ROSIGLITAZONE MALEATE
     Indication: Diabetes mellitus
     Dosage: 2 MG, BID
     Route: 048
     Dates: start: 20070407, end: 20091223
  2. AVANDAMET [Suspect]
     Active Substance: METFORMIN HYDROCHLORIDE\ROSIGLITAZONE MALEATE
     Indication: Diabetes mellitus
     Dosage: 2 MG, BID
     Route: 048
     Dates: start: 20080905, end: 20091223

REACTIONS (4)
  - Myocardial infarction [Unknown]
  - Acute coronary syndrome [Unknown]
  - Acute myocardial infarction [Unknown]
  - Coronary artery disease [Unknown]
